FAERS Safety Report 4682802-X (Version None)
Quarter: 2005Q2

REPORT INFORMATION
  Report Type: 
  Country: None (occurrence: None)
  Receive Date: 20050602
  Receipt Date: 20050421
  Transmission Date: 20051028
  Serious: No
  Sender: FDA-Public Use
  Company Number: USA050496362

PATIENT
  Age: 41 Year
  Sex: Male

DRUGS (1)
  1. CYMBALTA [Suspect]
     Indication: STRESS
     Dosage: 60 MG DAY
     Dates: start: 20050419

REACTIONS (4)
  - FEELING ABNORMAL [None]
  - INSOMNIA [None]
  - PARANOIA [None]
  - TREMOR [None]
